FAERS Safety Report 19428281 (Version 1)
Quarter: 2021Q2

REPORT INFORMATION
  Report Type: Report from Study
  Country: US (occurrence: US)
  Receive Date: 20210616
  Receipt Date: 20210616
  Transmission Date: 20210717
  Serious: Yes (Death)
  Sender: FDA-Public Use
  Company Number: US-BAXTER-2021BAX015891

PATIENT
  Age: 82 Year
  Sex: Male
  Weight: 76.7 kg

DRUGS (2)
  1. CYCLOPHOSPHAMIDE FOR INJECTION, USP [Suspect]
     Active Substance: CYCLOPHOSPHAMIDE
     Indication: PLASMA CELL MYELOMA
     Dosage: INJECTION FOR INFUSION
     Route: 042
     Dates: start: 20210217, end: 20210219
  2. FLUDARABINE [Suspect]
     Active Substance: FLUDARABINE PHOSPHATE
     Indication: PLASMA CELL MYELOMA
     Dosage: INJECTION FOR INFUSION
     Route: 042
     Dates: start: 20210217, end: 20210219

REACTIONS (1)
  - Death [Fatal]

NARRATIVE: CASE EVENT DATE: 20210601
